FAERS Safety Report 10194808 (Version 1)
Quarter: 2014Q2

REPORT INFORMATION
  Report Type: Other
  Country: GB (occurrence: GB)
  Receive Date: 20140526
  Receipt Date: 20140526
  Transmission Date: 20141212
  Serious: Yes (Disabling, Other)
  Sender: FDA-Public Use
  Company Number: GB-SUN PHARMACEUTICAL INDUSTRIES LTD-2014SUN01123

PATIENT
  Sex: 0

DRUGS (1)
  1. ZOLEDRONIC ACID FOR INJECTION (LYOPHILIZED) 4 MG (BASE)/ SINGLE-DOSE [Suspect]
     Indication: PRODUCT USED FOR UNKNOWN INDICATION
     Dosage: 5 MG, UNK
     Route: 042
     Dates: start: 20140417

REACTIONS (3)
  - Neuralgia [Unknown]
  - Acute phase reaction [Unknown]
  - Amputation stump pain [None]
